FAERS Safety Report 6537594-6 (Version None)
Quarter: 2010Q1

REPORT INFORMATION
  Report Type: 
  Country: None (occurrence: None)
  Receive Date: 20100114
  Receipt Date: 20091201
  Transmission Date: 20100710
  Serious: Yes (Hospitalization)
  Sender: FDA-Public Use
  Company Number: A0794492A

PATIENT
  Age: 59 Year
  Sex: Male
  Weight: 142.3 kg

DRUGS (6)
  1. AVANDIA [Suspect]
     Route: 048
  2. GLYBURIDE [Concomitant]
     Dates: end: 20050801
  3. SIMVASTATIN [Concomitant]
     Dates: end: 20050801
  4. GEMFIBROZIL [Concomitant]
  5. LOVASTATIN [Concomitant]
  6. METFORMIN [Concomitant]

REACTIONS (6)
  - BORDERLINE GLAUCOMA [None]
  - CARDIAC FAILURE CONGESTIVE [None]
  - CAROTID ARTERY STENOSIS [None]
  - CATARACT [None]
  - MACULAR OEDEMA [None]
  - OCULAR ISCHAEMIC SYNDROME [None]
